FAERS Safety Report 26077839 (Version 1)
Quarter: 2025Q4

REPORT INFORMATION
  Report Type: Spontaneous
  Country: US (occurrence: US)
  Receive Date: 20251122
  Receipt Date: 20251122
  Transmission Date: 20260117
  Serious: No
  Sender: MDD OPERATIONS
  Company Number: US-MDD US Operations-MDD202509-003976

PATIENT
  Age: 79 Year
  Sex: Female

DRUGS (1)
  1. ONAPGO [Suspect]
     Active Substance: APOMORPHINE HYDROCHLORIDE
     Indication: Product used for unknown indication
     Dosage: 24TH

REACTIONS (5)
  - Anxiety [Unknown]
  - Freezing phenomenon [Unknown]
  - Dizziness [Unknown]
  - Somnolence [Unknown]
  - Palpitations [Unknown]
